FAERS Safety Report 24840784 (Version 1)
Quarter: 2025Q1

REPORT INFORMATION
  Report Type: Report from Study
  Country: US (occurrence: US)
  Receive Date: 20250114
  Receipt Date: 20250114
  Transmission Date: 20250408
  Serious: Yes (Hospitalization)
  Sender: EISAI
  Company Number: US-Eisai-EC-2025-182238

PATIENT
  Age: 74 Year
  Sex: Male

DRUGS (33)
  1. LENVIMA [Suspect]
     Active Substance: LENVATINIB
     Indication: Malignant neoplasm of thymus
     Route: 048
     Dates: start: 20240606, end: 202406
  2. LENVIMA [Suspect]
     Active Substance: LENVATINIB
     Route: 048
     Dates: start: 202406, end: 20240705
  3. LENVIMA [Suspect]
     Active Substance: LENVATINIB
     Route: 048
     Dates: start: 20240710, end: 20240714
  4. LENVIMA [Suspect]
     Active Substance: LENVATINIB
     Route: 048
     Dates: start: 20240720, end: 202407
  5. LENVIMA [Suspect]
     Active Substance: LENVATINIB
     Route: 048
     Dates: start: 20240809, end: 20240902
  6. LENVIMA [Suspect]
     Active Substance: LENVATINIB
     Route: 048
     Dates: start: 20240903, end: 20240904
  7. LENVIMA [Suspect]
     Active Substance: LENVATINIB
     Route: 048
     Dates: start: 20240910
  8. IMODIUM A-D [Concomitant]
     Active Substance: LOPERAMIDE HYDROCHLORIDE
  9. OXYCODONE HYDROCHLORIDE [Concomitant]
     Active Substance: OXYCODONE HYDROCHLORIDE
  10. TYLENOL [Concomitant]
     Active Substance: ACETAMINOPHEN
  11. ALBUTEROL SULFATE [Concomitant]
     Active Substance: ALBUTEROL SULFATE
  12. DULOXETINE [Concomitant]
     Active Substance: DULOXETINE
  13. EFFERVESCENT [Concomitant]
  14. ELIQUIS [Concomitant]
     Active Substance: APIXABAN
  15. FINASTERIDE [Concomitant]
     Active Substance: FINASTERIDE
  16. FUROSEMIDE [Concomitant]
     Active Substance: FUROSEMIDE
  17. JARDIANCE [Concomitant]
     Active Substance: EMPAGLIFLOZIN
  18. LACTULOSE [Concomitant]
     Active Substance: LACTULOSE
  19. LIDOCAINE [Concomitant]
     Active Substance: LIDOCAINE
  20. METHADONE HYDROCHLORIDE [Concomitant]
     Active Substance: METHADONE HYDROCHLORIDE
  21. METOPROLOL [Concomitant]
     Active Substance: METOPROLOL
  22. ONDANSETRON [Concomitant]
     Active Substance: ONDANSETRON
  23. PROCHLORPERAZINE [Concomitant]
     Active Substance: PROCHLORPERAZINE
  24. SPIRONOLACTONE [Concomitant]
     Active Substance: SPIRONOLACTONE
  25. ACETAMINOPHEN [Concomitant]
     Active Substance: ACETAMINOPHEN
  26. ATORVASTATIN [Concomitant]
     Active Substance: ATORVASTATIN
  27. GABAPENTIN [Concomitant]
     Active Substance: GABAPENTIN
  28. GLYBURIDE [Concomitant]
     Active Substance: GLYBURIDE
  29. JANUVIA [Concomitant]
     Active Substance: SITAGLIPTIN PHOSPHATE
  30. LOSARTAN POTASSIUM [Concomitant]
     Active Substance: LOSARTAN POTASSIUM
  31. RANITIDINE HYDROCHLORIDE [Concomitant]
     Active Substance: RANITIDINE HYDROCHLORIDE
  32. TAMSULOSIN HCL [Concomitant]
  33. METFORMIN HYDROCHLORIDE [Concomitant]
     Active Substance: METFORMIN HYDROCHLORIDE

REACTIONS (3)
  - Toxicity to various agents [Not Recovered/Not Resolved]
  - Lethargy [Unknown]
  - Abdominal pain upper [Not Recovered/Not Resolved]

NARRATIVE: CASE EVENT DATE: 20240101
